FAERS Safety Report 5748663-2 (Version None)
Quarter: 2008Q2

REPORT INFORMATION
  Report Type: 
  Country: None (occurrence: None)
  Receive Date: 20080521
  Receipt Date: 20080512
  Transmission Date: 20081010
  Serious: Yes (Hospitalization)
  Sender: FDA-Public Use
  Company Number: 028-C5013-08041433

PATIENT
  Age: 52 Year
  Sex: Male
  Weight: 93 kg

DRUGS (6)
  1. CC-5013 (LENALIDOMIDE) (CAPSULES) [Suspect]
     Indication: MULTIPLE MYELOMA
     Dosage: 25 MG, ORAL
     Route: 048
     Dates: start: 20080306, end: 20080408
  2. DEXAMETHASONE [Suspect]
     Indication: MULTIPLE MYELOMA
     Dosage: 40 MG, ONCE WEEKLY, ORAL
     Route: 048
     Dates: start: 20080306, end: 20080408
  3. COUMADIN (WARFARIN SODIUM)Q [Concomitant]
  4. ASPIRIN [Concomitant]
  5. PLAVIX [Concomitant]
  6. TINZAPARIN (TINZAPARIN) [Concomitant]

REACTIONS (10)
  - ANAEMIA [None]
  - EXTRADURAL HAEMATOMA [None]
  - INTERNATIONAL NORMALISED RATIO INCREASED [None]
  - LEUKOPENIA [None]
  - LUMBAR SPINAL STENOSIS [None]
  - NEUTROPENIA [None]
  - PROTHROMBIN TIME PROLONGED [None]
  - PYREXIA [None]
  - THROMBOCYTOPENIA [None]
  - VIRAL INFECTION [None]
